FAERS Safety Report 9424952 (Version 1)
Quarter: 2013Q3

REPORT INFORMATION
  Report Type: Spontaneous
  Country: US (occurrence: US)
  Receive Date: 20130729
  Receipt Date: 20130729
  Transmission Date: 20140515
  Serious: No
  Sender: FDA-Public Use
  Company Number: US-PFIZER INC-2013219939

PATIENT
  Age: 81 Year
  Sex: Female
  Weight: 56.2 kg

DRUGS (6)
  1. CHANTIX [Suspect]
     Indication: SMOKING CESSATION THERAPY
     Dosage: UNK
  2. NICOTINE [Suspect]
     Indication: SMOKING CESSATION THERAPY
     Dosage: UNK
  3. ACYCLOVIR [Concomitant]
     Dosage: 100MG DAILY
  4. CITALOPRAM [Concomitant]
     Dosage: 20 MG, 2X/DAY
  5. DILTIAZEM [Concomitant]
     Dosage: 120 MG, 1X/DAY
  6. LEVOTHYROXINE [Concomitant]
     Dosage: 50 UG, UNK

REACTIONS (3)
  - Abnormal dreams [Unknown]
  - Cardiac disorder [Unknown]
  - Therapeutic response unexpected [Unknown]
